FAERS Safety Report 9776136 (Version 1)
Quarter: 2013Q4

REPORT INFORMATION
  Report Type: Spontaneous
  Country: IT (occurrence: None)
  Receive Date: 20131218
  Receipt Date: 20131218
  Transmission Date: 20140711
  Serious: Yes (Hospitalization)
  Sender: FDA-Public Use
  Company Number: AUR-APL-2013-10494

PATIENT
  Age: 73 Year
  Sex: Male

DRUGS (8)
  1. RAMIPRIL (RAMIPRIL) [Suspect]
     Indication: MYOCARDIAL ISCHAEMIA
     Route: 048
     Dates: start: 20131018
  2. KCL-RETARD [Suspect]
     Indication: CARDIAC FAILURE
     Dosage: 2 DOSAGE FORMS, 1 IN 1 D, ORAL
     Route: 048
     Dates: start: 20130920, end: 20131103
  3. LASIX (FUROSEMIDE) [Concomitant]
  4. ALTIAZEM (DILTIAZEM HYDROCHLORIDE) [Concomitant]
  5. NEXIUM (ESOMEPRAZOLE MAGNESIUM) [Concomitant]
  6. DIAMICRON (GLICLAZIDE) [Concomitant]
  7. SEROQUEL (QUETIAPINE FUMARATE) [Concomitant]
  8. FOSTER (PIROXICAM) [Concomitant]

REACTIONS (3)
  - Asthenia [None]
  - Drug interaction [None]
  - Hyperkalaemia [None]
